FAERS Safety Report 4879125-2 (Version None)
Quarter: 2006Q1

REPORT INFORMATION
  Report Type: 
  Country: None (occurrence: None)
  Receive Date: 20060112
  Receipt Date: 20060103
  Transmission Date: 20060701
  Serious: Yes (Hospitalization, Other)
  Sender: FDA-Public Use
  Company Number: US-BRISTOL-MYERS SQUIBB COMPANY-13234976

PATIENT
  Age: 50 Year
  Sex: Male
  Weight: 77 kg

DRUGS (6)
  1. COUMADIN [Suspect]
     Indication: THROMBOSIS
     Dates: start: 20050401
  2. FOLIC ACID [Concomitant]
  3. LACTULOSE [Concomitant]
  4. LASIX [Concomitant]
  5. ALDACTONE [Concomitant]
  6. QUININE [Concomitant]

REACTIONS (4)
  - ASCITES [None]
  - BLUE TOE SYNDROME [None]
  - GINGIVAL BLEEDING [None]
  - PULMONARY EMBOLISM [None]
